FAERS Safety Report 6734020-9 (Version None)
Quarter: 2010Q2

REPORT INFORMATION
  Report Type: 
  Country: None (occurrence: None)
  Receive Date: 20100518
  Receipt Date: 20100504
  Transmission Date: 20101027
  Serious: Yes (Other)
  Sender: FDA-Public Use
  Company Number: 232066J10USA

PATIENT
  Age: 32 Year
  Sex: Female
  Weight: 134 kg

DRUGS (2)
  1. REBIF [Suspect]
     Indication: RELAPSING-REMITTING MULTIPLE SCLEROSIS
     Dosage: 8.8 MCG, 3 IN 1 WK, SUBCUTANEOUS
     Route: 058
     Dates: start: 20100223, end: 20100304
  2. BENADRYL [Concomitant]

REACTIONS (11)
  - DYSPHAGIA [None]
  - OEDEMA MOUTH [None]
  - ORAL DISORDER [None]
  - OROPHARYNGEAL PAIN [None]
  - PHARYNGEAL DISORDER [None]
  - PHARYNGEAL OEDEMA [None]
  - RASH [None]
  - SENSATION OF FOREIGN BODY [None]
  - SWOLLEN TONGUE [None]
  - TONGUE DISORDER [None]
  - VOMITING [None]
